FAERS Safety Report 8793517 (Version 5)
Quarter: 2017Q2

REPORT INFORMATION
  Report Type: Spontaneous
  Country: GB (occurrence: GB)
  Receive Date: 20120917
  Receipt Date: 20170615
  Transmission Date: 20170830
  Serious: Yes (Other)
  Sender: FDA-Public Use
  Company Number: GB-TEVA-358047ISR

PATIENT
  Age: 82 Year
  Sex: Female

DRUGS (4)
  1. DEXAMETHASONE. [Suspect]
     Active Substance: DEXAMETHASONE
     Route: 048
     Dates: end: 201204
  2. LOTEMAX [Suspect]
     Active Substance: LOTEPREDNOL ETABONATE
     Indication: FUNGAL INFECTION
     Dosage: ONE DROP INTO BOTH EYES DAILY
     Route: 047
     Dates: start: 201006
  3. PREDNISOLONE. [Suspect]
     Active Substance: PREDNISOLONE
     Dates: end: 201204
  4. TIMOPTOL [Suspect]
     Active Substance: TIMOLOL
     Route: 047

REACTIONS (2)
  - Off label use [Unknown]
  - Diabetes mellitus [Unknown]

NARRATIVE: CASE EVENT DATE: 201006
